FAERS Safety Report 13037681 (Version 1)
Quarter: 2016Q4

REPORT INFORMATION
  Report Type: Spontaneous
  Country: US (occurrence: US)
  Receive Date: 20161217
  Receipt Date: 20161217
  Transmission Date: 20170207
  Serious: No
  Sender: FDA-Public Use
  Company Number: US-ASTRAZENECA-2016SF23688

PATIENT
  Sex: Female

DRUGS (2)
  1. BYDUREON [Suspect]
     Active Substance: EXENATIDE
     Route: 065
  2. LYRICA [Suspect]
     Active Substance: PREGABALIN
     Route: 065

REACTIONS (4)
  - Hypoaesthesia [Unknown]
  - Drug hypersensitivity [Unknown]
  - Rash [Unknown]
  - Pain [Unknown]
